FAERS Safety Report 4294450-4 (Version None)
Quarter: 2004Q1

REPORT INFORMATION
  Report Type: 
  Country: None (occurrence: None)
  Receive Date: 20040211
  Receipt Date: 20040126
  Transmission Date: 20041129
  Serious: Yes (Other)
  Sender: FDA-Public Use
  Company Number: MK200312-0148-1

PATIENT
  Age: 42 Year
  Sex: Female

DRUGS (1)
  1. OPTIRAY 350 [Suspect]
     Indication: COMPUTERISED TOMOGRAM
     Dosage: , SINGLE DOSE
     Dates: start: 20031117, end: 20031117

REACTIONS (15)
  - ANAPHYLACTOID REACTION [None]
  - BRADYCARDIA [None]
  - FACE OEDEMA [None]
  - HOT FLUSH [None]
  - INSOMNIA [None]
  - LATENT TETANY [None]
  - MALAISE [None]
  - MUSCLE DISORDER [None]
  - NAUSEA [None]
  - PRURITUS [None]
  - RASH [None]
  - SYNCOPE VASOVAGAL [None]
  - URTICARIA [None]
  - VERTIGO [None]
  - WEIGHT DECREASED [None]
